FAERS Safety Report 12468846 (Version 1)
Quarter: 2016Q2

REPORT INFORMATION
  Report Type: Spontaneous
  Country: BR (occurrence: BR)
  Receive Date: 20160615
  Receipt Date: 20160615
  Transmission Date: 20160815
  Serious: Yes (Other)
  Sender: FDA-Public Use
  Company Number: BR-ASTRAZENECA-2016SE61580

PATIENT
  Age: 491 Month
  Sex: Male
  Weight: 91 kg

DRUGS (4)
  1. DUOVENT [Concomitant]
     Active Substance: FENOTEROL HYDROBROMIDE
     Indication: ASTHMATIC CRISIS
     Dosage: AS REQUIRED
     Route: 055
     Dates: start: 2015
  2. SYMBICORT [Suspect]
     Active Substance: BUDESONIDE\FORMOTEROL FUMARATE DIHYDRATE
     Indication: ASTHMA
     Dosage: ALENIA
     Route: 055
  3. BUSONID [Suspect]
     Active Substance: BUDESONIDE
     Indication: ASTHMA
     Dosage: 200 MCG, TWO TIMES A DAY
     Route: 055
     Dates: start: 201510
  4. SYMBICORT [Suspect]
     Active Substance: BUDESONIDE\FORMOTEROL FUMARATE DIHYDRATE
     Indication: ASTHMA
     Dosage: 320/9 MCG, TWO TIMES A DAY
     Route: 055
     Dates: start: 201605

REACTIONS (3)
  - Fatigue [Not Recovered/Not Resolved]
  - Asthmatic crisis [Recovered/Resolved]
  - Drug ineffective [Not Recovered/Not Resolved]

NARRATIVE: CASE EVENT DATE: 201605
